FAERS Safety Report 13310048 (Version 1)
Quarter: 2017Q1

REPORT INFORMATION
  Report Type: Spontaneous
  Country: SI (occurrence: SI)
  Receive Date: 20170309
  Receipt Date: 20170309
  Transmission Date: 20170428
  Serious: Yes (Hospitalization, Other)
  Sender: FDA-Public Use
  Company Number: SI-BAYER-2017-023967

PATIENT
  Age: 65 Year
  Sex: Male

DRUGS (12)
  1. NEXAVAR [Suspect]
     Active Substance: SORAFENIB
     Dosage: 200 MG, BID
     Dates: start: 201412, end: 201503
  2. TENOX [AMLODIPINE MALEATE] [Concomitant]
  3. NEXAVAR [Suspect]
     Active Substance: SORAFENIB
     Dosage: 400 MG, BID
     Dates: start: 201311
  4. OLFEN [Concomitant]
     Active Substance: DICLOFENAC SODIUM
  5. NEXIUM [Concomitant]
     Active Substance: ESOMEPRAZOLE MAGNESIUM
  6. INSULIN [Concomitant]
     Active Substance: INSULIN NOS
     Dosage: ACCORDING TO SCHEME
  7. NEXAVAR [Suspect]
     Active Substance: SORAFENIB
     Dosage: 200 MG, BID
  8. DIUVER [Concomitant]
     Active Substance: TORSEMIDE
  9. CONCOR COR [Concomitant]
     Active Substance: BISOPROLOL FUMARATE
  10. ASPIRIN PROTECT 100 MG [Concomitant]
     Active Substance: ASPIRIN
  11. COAPROVEL [Concomitant]
     Active Substance: HYDROCHLOROTHIAZIDE\IRBESARTAN
  12. BARACLUDE [Concomitant]
     Active Substance: ENTECAVIR

REACTIONS (11)
  - Myocardial ischaemia [None]
  - Myocardial ischaemia [None]
  - Fistula [Recovered/Resolved]
  - Computerised tomogram abnormal [None]
  - Chest pain [None]
  - Blood pressure inadequately controlled [None]
  - Epistaxis [None]
  - Acute myocardial infarction [None]
  - Blood pressure increased [Recovering/Resolving]
  - Ascites [Recovered/Resolved]
  - Skin disorder [None]

NARRATIVE: CASE EVENT DATE: 2013
